FAERS Safety Report 6599128-X (Version None)
Quarter: 2010Q1

REPORT INFORMATION
  Report Type: 
  Country: None (occurrence: None)
  Receive Date: 20100224
  Receipt Date: 20091120
  Transmission Date: 20100710
  Serious: No
  Sender: FDA-Public Use
  Company Number: US-BRISTOL-MYERS SQUIBB COMPANY-14866172

PATIENT
  Age: 79 Year
  Sex: Female
  Weight: 61 kg

DRUGS (3)
  1. GLUCOPHAGE [Suspect]
     Indication: GLUCOSE TOLERANCE IMPAIRED
     Dosage: DOSAGE DECREASED TO 500MG QD
     Dates: start: 20090101
  2. MAXZIDE [Concomitant]
  3. CRESTOR [Concomitant]

REACTIONS (2)
  - ABDOMINAL PAIN [None]
  - DIARRHOEA [None]
